FAERS Safety Report 9945116 (Version 1)
Quarter: 2014Q1

REPORT INFORMATION
  Report Type: Report from Study
  Country: US (occurrence: US)
  Receive Date: 20140303
  Receipt Date: 20140303
  Transmission Date: 20141002
  Serious: No
  Sender: FDA-Public Use
  Company Number: US-ABBVIE-13P-163-1050685-00

PATIENT
  Age: 54 Year
  Sex: Female

DRUGS (13)
  1. HUMIRA [Suspect]
     Indication: RHEUMATOID ARTHRITIS
     Dates: start: 20130201
  2. METHOTREXATE [Concomitant]
     Indication: RHEUMATOID ARTHRITIS
     Dosage: 10 EVERY TUESDAY
  3. HYDROCODONE [Concomitant]
     Indication: PAIN
     Dosage: 10/500 MG
  4. ALPRAZOLAM XR [Concomitant]
     Indication: ANXIETY
     Dosage: EVERY AM
  5. MECLIZINE [Concomitant]
     Indication: DIZZINESS
     Dosage: 1/2 - 1 EVERY 6 HOURS AS REQUIRED
  6. CLONAZEPAM [Concomitant]
     Indication: HEAD INJURY
     Dosage: EVERY NIGHT
  7. FOLIC ACID [Concomitant]
     Indication: PRODUCT USED FOR UNKNOWN INDICATION
  8. PREDNISONE [Concomitant]
     Indication: RHEUMATOID ARTHRITIS
     Dosage: 2 EVERY AM
  9. SERTRALINE [Concomitant]
     Indication: HEAD INJURY
     Dosage: EVERY NIGHT
  10. METHYLPHENIDATE [Concomitant]
     Indication: HEAD INJURY
  11. METOPROLOL TARTRATE [Concomitant]
     Indication: HYPERTENSION
     Dosage: 1/2 TWICE A DAY
  12. BLACK COHOSH EXTRACT [Concomitant]
     Indication: HOT FLUSH
  13. CALCIUM PLUS D [Concomitant]
     Indication: RHEUMATOID ARTHRITIS

REACTIONS (3)
  - Fatigue [Recovered/Resolved]
  - Throat irritation [Recovered/Resolved]
  - Dysarthria [Recovered/Resolved]
